FAERS Safety Report 7237573-X (Version None)
Quarter: 2011Q1

REPORT INFORMATION
  Report Type: 
  Country: None (occurrence: None)
  Receive Date: 20110118
  Receipt Date: 20110105
  Transmission Date: 20110831
  Serious: Yes (Disabling, Other)
  Sender: FDA-Public Use
  Company Number: 2011MA000194

PATIENT
  Sex: Female

DRUGS (3)
  1. METOCLOPRAMIDE [Suspect]
     Dosage: PO
     Route: 048
  2. PREV MEDS [Concomitant]
  3. CON MEDS [Concomitant]

REACTIONS (10)
  - ACTIVITIES OF DAILY LIVING IMPAIRED [None]
  - ECONOMIC PROBLEM [None]
  - NERVOUS SYSTEM DISORDER [None]
  - TARDIVE DYSKINESIA [None]
  - EXTRAPYRAMIDAL DISORDER [None]
  - MENTAL DISORDER [None]
  - INJURY [None]
  - DEFORMITY [None]
  - PAIN [None]
  - MOVEMENT DISORDER [None]
